FAERS Safety Report 6470479-2 (Version None)
Quarter: 2009Q4

REPORT INFORMATION
  Report Type: 
  Country: None (occurrence: None)
  Receive Date: 20091203
  Receipt Date: 20091202
  Transmission Date: 20100525
  Serious: Yes (Hospitalization, Other)
  Sender: FDA-Public Use
  Company Number: ES-ROXANE LABORATORIES, INC.-2009-RO-01203RO

PATIENT
  Age: 69 Year
  Sex: Male

DRUGS (5)
  1. PREDNISONE [Suspect]
     Indication: IMMUNOSUPPRESSANT DRUG THERAPY
  2. TACROLIMUS [Suspect]
     Indication: IMMUNOSUPPRESSANT DRUG THERAPY
  3. METHYLPREDNISOLONE [Suspect]
     Indication: TRANSPLANT REJECTION
  4. SULFAMETHOXAZOLE AND TRIMETHOPRIM [Suspect]
     Indication: NOCARDIOSIS
     Route: 042
  5. SULFAMETHOXAZOLE AND TRIMETHOPRIM [Suspect]
     Route: 048

REACTIONS (7)
  - BILE DUCT STONE [None]
  - CENTRAL NERVOUS SYSTEM LESION [None]
  - METABOLIC ACIDOSIS [None]
  - MUSCLE ABSCESS [None]
  - NOCARDIOSIS [None]
  - SUBCUTANEOUS ABSCESS [None]
  - TRANSPLANT REJECTION [None]
